FAERS Safety Report 4956103-6 (Version None)
Quarter: 2006Q1

REPORT INFORMATION
  Report Type: 
  Country: None (occurrence: None)
  Receive Date: 20060328
  Receipt Date: 20060321
  Transmission Date: 20060701
  Serious: Yes (Hospitalization)
  Sender: FDA-Public Use
  Company Number: US-MERCK-0603USA03362

PATIENT
  Age: 74 Year
  Sex: Male

DRUGS (2)
  1. ZOCOR [Suspect]
     Indication: BLOOD CHOLESTEROL INCREASED
     Route: 048
     Dates: start: 20030101, end: 20060301
  2. FLOMAX (MORNIFLUMATE) [Concomitant]
     Route: 065

REACTIONS (4)
  - ERYTHEMA [None]
  - MUSCLE SWELLING [None]
  - MYALGIA [None]
  - THROMBOSIS [None]
